FAERS Safety Report 21387113 (Version 14)
Quarter: 2025Q4

REPORT INFORMATION
  Report Type: Report from Study
  Country: US (occurrence: US)
  Receive Date: 20220928
  Receipt Date: 20251215
  Transmission Date: 20260118
  Serious: Yes (Other)
  Sender: TAKEDA
  Company Number: US-TAKEDA-2022TUS068524

PATIENT
  Age: 43 Year
  Sex: Female
  Weight: 42.177 kg

DRUGS (11)
  1. TEDUGLUTIDE [Suspect]
     Active Substance: TEDUGLUTIDE
     Indication: Malabsorption
     Dosage: 2.3 MILLIGRAM, QD
     Dates: start: 20220809
  2. TEDUGLUTIDE [Suspect]
     Active Substance: TEDUGLUTIDE
     Indication: Malnutrition
     Dosage: 0.23 MILLILITER, QD
     Dates: start: 20220809
  3. TEDUGLUTIDE [Suspect]
     Active Substance: TEDUGLUTIDE
     Indication: Idiopathic urticaria
     Dosage: 2.3 MILLIGRAM, QD
     Dates: start: 20220810
  4. TEDUGLUTIDE [Suspect]
     Active Substance: TEDUGLUTIDE
     Indication: Short-bowel syndrome
     Dosage: 0.23 MILLILITER, QD
     Dates: start: 202208
  5. TEDUGLUTIDE [Suspect]
     Active Substance: TEDUGLUTIDE
     Indication: Functional gastrointestinal disorder
     Dosage: 2.3 MILLIGRAM, QD
     Dates: start: 20220816
  6. TEDUGLUTIDE [Suspect]
     Active Substance: TEDUGLUTIDE
     Dosage: 0.23 MILLILITER, QD
     Dates: start: 20221005
  7. TEDUGLUTIDE [Suspect]
     Active Substance: TEDUGLUTIDE
     Dosage: 2.3 MILLIGRAM, QD
  8. TEDUGLUTIDE [Suspect]
     Active Substance: TEDUGLUTIDE
     Dosage: 0.23 MILLILITER, QD
     Dates: start: 202208
  9. TEDUGLUTIDE [Suspect]
     Active Substance: TEDUGLUTIDE
     Dosage: 0.2 MILLILITER, QD
  10. TEDUGLUTIDE [Suspect]
     Active Substance: TEDUGLUTIDE
     Dosage: 0.3 MILLILITER, QD
  11. MEDICAL FOOD [Suspect]
     Active Substance: MEDICAL FOOD
     Indication: Product used for unknown indication
     Dosage: UNK

REACTIONS (23)
  - Loss of consciousness [Unknown]
  - Eosinophilic colitis [Not Recovered/Not Resolved]
  - Gastroenteritis viral [Unknown]
  - Malaise [Unknown]
  - Asthenia [Unknown]
  - Blood potassium decreased [Unknown]
  - Abdominal discomfort [Unknown]
  - Faeces discoloured [Unknown]
  - Nervous system disorder [Unknown]
  - Bowel movement irregularity [Unknown]
  - Weight decreased [Unknown]
  - Diarrhoea [Unknown]
  - Pain [Not Recovered/Not Resolved]
  - Gastrooesophageal reflux disease [Unknown]
  - Insurance issue [Unknown]
  - Vitamin D decreased [Unknown]
  - Blood parathyroid hormone increased [Unknown]
  - Product use issue [Unknown]
  - Abdominal distension [Unknown]
  - Abdominal pain upper [Unknown]
  - Insomnia [Unknown]
  - Abdominal pain [Unknown]
  - Nausea [Unknown]

NARRATIVE: CASE EVENT DATE: 20221230
